FAERS Safety Report 9057654 (Version 1)
Quarter: 2013Q1

REPORT INFORMATION
  Report Type: Spontaneous
  Country: GB (occurrence: None)
  Receive Date: 20130117
  Receipt Date: 20130117
  Transmission Date: 20140127
  Serious: Yes (Hospitalization)
  Sender: FDA-Public Use
  Company Number: 2013SUN00006

PATIENT
  Age: 73 Year
  Sex: Male

DRUGS (5)
  1. OLANZAPINE [Suspect]
     Indication: BIPOLAR DISORDER
     Route: 048
     Dates: start: 20110830, end: 20120315
  2. DOMPERIDONE (DOMPERIDONE) [Concomitant]
  3. ESOMEPRAZOLE (ESOMEPRAZOLE) [Concomitant]
  4. FINASTERIDE (FINASTERIDE) [Concomitant]
  5. PRIADEL (LITHIUM CARBONATE AND LITHIUM CITRATE) [Concomitant]

REACTIONS (9)
  - Blood creatinine increased [None]
  - Decreased appetite [None]
  - Pain in extremity [None]
  - Blood creatine phosphokinase increased [None]
  - Diarrhoea [None]
  - Myalgia [None]
  - Neuroleptic malignant syndrome [None]
  - Urine output decreased [None]
  - Hypophagia [None]
